FAERS Safety Report 4413742-9 (Version None)
Quarter: 2004Q2

REPORT INFORMATION
  Report Type: 
  Country: None (occurrence: None)
  Receive Date: 20040630
  Receipt Date: 20040303
  Transmission Date: 20050107
  Serious: No
  Sender: FDA-Public Use
  Company Number: 04P-163-0252210-00

PATIENT
  Age: 60 Year
  Sex: Male
  Weight: 80.7403 kg

DRUGS (7)
  1. HUMIRA [Suspect]
     Indication: RHEUMATOID ARTHRITIS
     Dosage: 40 MG, 1 IN 2 WK, SUBCUTANEOUS
     Route: 058
     Dates: start: 20040301
  2. LEFLUNOMIDE [Concomitant]
  3. PREDNISONE [Concomitant]
  4. OMEPRAZOLE [Concomitant]
  5. ATORVASTATIN CALCIUM [Concomitant]
  6. ALBUTEROL SULFATE [Concomitant]
  7. SERETIDE MITE [Concomitant]

REACTIONS (2)
  - CHEST DISCOMFORT [None]
  - DYSPNOEA [None]
